FAERS Safety Report 25539611 (Version 1)
Quarter: 2025Q3

REPORT INFORMATION
  Report Type: Spontaneous
  Country: US (occurrence: None)
  Receive Date: 20250710
  Receipt Date: 20250710
  Transmission Date: 20251021
  Serious: Yes (Disabling, Other)
  Sender: FDA-CTU
  Company Number: None

PATIENT
  Age: 42 Year
  Sex: Female
  Weight: 56.7 kg

DRUGS (9)
  1. CITALOPRAM [Suspect]
     Active Substance: CITALOPRAM
     Indication: Depression
  2. SERTRALINE [Suspect]
     Active Substance: SERTRALINE HYDROCHLORIDE
  3. CYMBALTA [Suspect]
     Active Substance: DULOXETINE HYDROCHLORIDE
  4. ZONEGRAN [Concomitant]
     Active Substance: ZONISAMIDE
  5. TIROSINT [Concomitant]
     Active Substance: LEVOTHYROXINE SODIUM
  6. BUPROPION [Concomitant]
     Active Substance: BUPROPION
  7. VYVANSE [Concomitant]
     Active Substance: LISDEXAMFETAMINE DIMESYLATE
  8. COLLAGEN [Concomitant]
     Active Substance: COLLAGEN
  9. ELECTROLYTES NOS [Concomitant]
     Active Substance: ELECTROLYTES NOS

REACTIONS (8)
  - Electric shock sensation [None]
  - Night sweats [None]
  - Nausea [None]
  - Mood swings [None]
  - Loss of libido [None]
  - Hot flush [None]
  - Therapy interrupted [None]
  - Condition aggravated [None]

NARRATIVE: CASE EVENT DATE: 20250710
